FAERS Safety Report 19583841 (Version 1)
Quarter: 2021Q3

REPORT INFORMATION
  Report Type: Spontaneous
  Country: US (occurrence: US)
  Receive Date: 20210720
  Receipt Date: 20210720
  Transmission Date: 20211014
  Serious: Yes (Other)
  Sender: FDA-Public Use
  Company Number: US-ROCHE-2867375

PATIENT
  Age: 30 Year
  Sex: Female

DRUGS (2)
  1. REMICADE [Concomitant]
     Active Substance: INFLIXIMAB
  2. DIAZEPAM. [Suspect]
     Active Substance: DIAZEPAM
     Indication: PRODUCT USED FOR UNKNOWN INDICATION
     Dosage: X1 DOSE ;ONGOING: NO
     Route: 065
     Dates: start: 199108, end: 199108

REACTIONS (2)
  - Crohn^s disease [Not Recovered/Not Resolved]
  - Intestinal resection [Unknown]
